FAERS Safety Report 6458872-5 (Version None)
Quarter: 2009Q4

REPORT INFORMATION
  Report Type: 
  Country: None (occurrence: None)
  Receive Date: 20091127
  Receipt Date: 20091104
  Transmission Date: 20100525
  Serious: Yes (Other)
  Sender: FDA-Public Use
  Company Number: US-BAYER-200934671NA

PATIENT
  Age: 29 Year
  Sex: Female
  Weight: 74 kg

DRUGS (3)
  1. YAZ [Suspect]
     Indication: CONTRACEPTION
     Route: 048
     Dates: start: 20090527
  2. LEVLEN 28 [Concomitant]
  3. OVCON-35 [Concomitant]

REACTIONS (1)
  - DEEP VEIN THROMBOSIS [None]
